FAERS Safety Report 8596761 (Version 2)
Quarter: 2012Q4

REPORT INFORMATION
  Report Type: 
  Country: ES (occurrence: ES)
  Receive Date: 20120605
  Receipt Date: 20121101
  Transmission Date: 20130627
  Serious: Yes (Hospitalization, Other)
  Sender: FDA-Public Use
  Company Number: ES-ELI_LILLY_AND_COMPANY-ES201205009207

PATIENT
  Sex: Female
  Weight: 78 kg

DRUGS (7)
  1. FORSTEO [Suspect]
     Indication: OSTEOPOROSIS
     Dosage: 20 ug, qd
     Route: 058
     Dates: start: 201104
  2. PARIET [Concomitant]
     Indication: GASTRIC DISORDER
     Dosage: 20 mg, qd
     Route: 048
  3. MICARDIS PLUS [Concomitant]
     Indication: HYPERTENSION
     Dosage: 1 DF, qd
     Route: 048
  4. MESTINON [Concomitant]
     Indication: MUSCULAR WEAKNESS
     Dosage: 60 mg, every 8 hrs
     Route: 048
     Dates: start: 2008
  5. PREDNISONA [Concomitant]
     Indication: MUSCULAR WEAKNESS
     Dosage: 10 mg, qd
     Route: 048
     Dates: start: 2008
  6. CLOPIDOGREL [Concomitant]
     Indication: ANTICOAGULANT THERAPY
     Dosage: 75 mg, qd
     Route: 048
     Dates: start: 201202
  7. ZALDIAR [Concomitant]
     Indication: ANALGESIC THERAPY
     Dosage: UNK, prn
     Route: 048

REACTIONS (5)
  - Gastrointestinal haemorrhage [Recovered/Resolved]
  - Renal colic [Unknown]
  - Intestinal polyp [Recovered/Resolved]
  - Nephrolithiasis [Not Recovered/Not Resolved]
  - Cholelithiasis [Unknown]
